FAERS Safety Report 4578461-7 (Version None)
Quarter: 2005Q1

REPORT INFORMATION
  Report Type: 
  Country: None (occurrence: None)
  Receive Date: 20050202
  Receipt Date: 20050202
  Transmission Date: 20050727
  Serious: No
  Sender: FDA-Public Use
  Company Number: None

PATIENT
  Age: 42 Year
  Sex: Female
  Weight: 65.318 kg

DRUGS (1)
  1. ORTHO CYCLEN-21 [Suspect]
     Indication: MENORRHAGIA
     Dosage: Q D -ORAL
     Route: 048
     Dates: start: 20000701

REACTIONS (2)
  - MENORRHAGIA [None]
  - PHARMACEUTICAL PRODUCT COMPLAINT [None]
